FAERS Safety Report 5465450-3 (Version None)
Quarter: 2007Q3

REPORT INFORMATION
  Report Type: 
  Country: None (occurrence: None)
  Receive Date: 20070920
  Receipt Date: 20070911
  Transmission Date: 20080115
  Serious: Yes (Other)
  Sender: FDA-Public Use
  Company Number: 2007-04156

PATIENT
  Age: 65 Year
  Sex: Male

DRUGS (4)
  1. HYDROXYCHLOROQUINE SULFATE [Suspect]
     Indication: SYSTEMIC LUPUS ERYTHEMATOSUS
     Dosage: 400 MG, DAILY X 6 YRS, ORAL
     Route: 048
     Dates: start: 20020101, end: 20070101
  2. PREDNISONE [Concomitant]
  3. ASPIRIN [Concomitant]
  4. FLUOXETINE [Concomitant]

REACTIONS (2)
  - MYELODYSPLASTIC SYNDROME [None]
  - REFRACTORY ANAEMIA [None]
